FAERS Safety Report 22721535 (Version 2)
Quarter: 2024Q3

REPORT INFORMATION
  Report Type: Spontaneous
  Country: US (occurrence: US)
  Receive Date: 20230719
  Receipt Date: 20240723
  Transmission Date: 20241017
  Serious: No
  Sender: OTSUKA
  Company Number: US-OTSUKA-2023_012889

PATIENT
  Sex: Male
  Weight: 77.56 kg

DRUGS (3)
  1. REXULTI [Suspect]
     Active Substance: BREXPIPRAZOLE
     Indication: Schizophrenia
     Dosage: 1 MG, TID
     Route: 065
     Dates: start: 20230226
  2. REXULTI [Suspect]
     Active Substance: BREXPIPRAZOLE
     Dosage: 2 MG (GREEN PILL/CUT IT IN HALF, HALF IN AFTERNOON, HALF IN EVENING)
     Route: 065
  3. REXULTI [Suspect]
     Active Substance: BREXPIPRAZOLE
     Dosage: 1 MG, BID
     Route: 065
     Dates: start: 20230226

REACTIONS (4)
  - Bacterial infection [Unknown]
  - Paranoia [Unknown]
  - Insurance issue [Unknown]
  - Off label use [Unknown]
